FAERS Safety Report 7703644-4 (Version None)
Quarter: 2011Q3

REPORT INFORMATION
  Report Type: 
  Country: None (occurrence: None)
  Receive Date: 20110823
  Receipt Date: 20110815
  Transmission Date: 20111222
  Serious: Yes (Other)
  Sender: FDA-Public Use
  Company Number: US-AMGEN-USASP2011041427

PATIENT
  Sex: Male

DRUGS (2)
  1. SENSIPAR [Suspect]
     Indication: PRODUCT USED FOR UNKNOWN INDICATION
     Dosage: 90 MG, UNK
  2. SENSIPAR [Suspect]
     Dosage: 120 MG, UNK

REACTIONS (4)
  - BLOOD PARATHYROID HORMONE INCREASED [None]
  - AGITATION [None]
  - BLOOD CALCIUM INCREASED [None]
  - ANXIETY [None]
